FAERS Safety Report 8496189-8 (Version None)
Quarter: 2012Q3

REPORT INFORMATION
  Report Type: 
  Country: None (occurrence: None)
  Receive Date: 20120709
  Receipt Date: 20120706
  Transmission Date: 20120928
  Serious: Yes (Death, Other)
  Sender: FDA-Public Use
  Company Number: PHHY2012IE058145

PATIENT
  Age: 55 Year
  Sex: Female

DRUGS (3)
  1. METHOTREXATE [Suspect]
     Indication: PSORIASIS
  2. ETANERCEPT [Concomitant]
     Indication: PSORIATIC ARTHROPATHY
     Dosage: 50 MG, QW2
     Dates: start: 20040201
  3. ADALIMUMAB [Suspect]
     Indication: PSORIATIC ARTHROPATHY
     Dates: start: 20070301

REACTIONS (5)
  - METASTASES TO LIVER [None]
  - PSORIASIS [None]
  - METASTASES TO BONE [None]
  - SQUAMOUS CELL CARCINOMA OF THE CERVIX [None]
  - METASTASES TO LUNG [None]
